FAERS Safety Report 23460347 (Version 2)
Quarter: 2024Q1

REPORT INFORMATION
  Report Type: Spontaneous
  Country: DE (occurrence: DE)
  Receive Date: 20240131
  Receipt Date: 20240208
  Transmission Date: 20240410
  Serious: Yes (Death, Hospitalization, Other)
  Sender: FDA-Public Use
  Company Number: DE-ASTELLAS-2022US032973

PATIENT
  Age: 65 Year
  Sex: Female

DRUGS (25)
  1. TACROLIMUS [Suspect]
     Active Substance: TACROLIMUS
     Indication: Liver transplant
     Dosage: UNK UNK, UNKNOWN FREQ. (TARGET TROUGH 4-6 NG/ML)
     Route: 065
  2. TACROLIMUS [Suspect]
     Active Substance: TACROLIMUS
     Indication: Liver transplant
     Dosage: UNK UNK, UNKNOWN FREQ. (RECEIVED AFTER SECOND LIVER TRANSPLANT)
     Route: 065
  3. TACROLIMUS [Suspect]
     Active Substance: TACROLIMUS
     Indication: Prophylaxis against graft versus host disease
  4. TACROLIMUS [Suspect]
     Active Substance: TACROLIMUS
     Indication: Immunosuppressant drug therapy
  5. AMPHOTERICIN B [Suspect]
     Active Substance: AMPHOTERICIN B
     Indication: Anti-infective therapy
     Dosage: UNK UNK, UNKNOWN FREQ.
     Route: 065
  6. AMPHOTERICIN B [Suspect]
     Active Substance: AMPHOTERICIN B
     Indication: Antifungal prophylaxis
  7. PREDNISOLONE [Suspect]
     Active Substance: PREDNISOLONE
     Indication: Liver transplant
     Dosage: UNK UNK, UNKNOWN FREQ.
     Route: 065
  8. PREDNISOLONE [Suspect]
     Active Substance: PREDNISOLONE
     Indication: Liver transplant
     Dosage: UNK UNK, UNKNOWN FREQ. (RECEIVED AFTER SECOND LIVER TRANSPLANT)
     Route: 065
  9. PREDNISOLONE [Suspect]
     Active Substance: PREDNISOLONE
     Indication: Immunosuppressant drug therapy
  10. PREDNISOLONE [Suspect]
     Active Substance: PREDNISOLONE
     Indication: Prophylaxis against graft versus host disease
  11. BASILIXIMAB [Suspect]
     Active Substance: BASILIXIMAB
     Indication: Liver transplant
     Dosage: 20 MG, UNKNOWN FREQ. (POD 1 AND 4)
     Route: 065
  12. BASILIXIMAB [Suspect]
     Active Substance: BASILIXIMAB
     Indication: Liver transplant
     Dosage: UNK UNK, UNKNOWN FREQ. (RECEIVED AFTER SECOND LIVER TRANSPLANT)
     Route: 065
  13. BASILIXIMAB [Suspect]
     Active Substance: BASILIXIMAB
     Indication: Immunosuppressant drug therapy
  14. BASILIXIMAB [Suspect]
     Active Substance: BASILIXIMAB
     Indication: Prophylaxis against graft versus host disease
  15. VALGANCICLOVIR HYDROCHLORIDE [Suspect]
     Active Substance: VALGANCICLOVIR HYDROCHLORIDE
     Indication: Antifungal prophylaxis
     Dosage: UNK UNK, UNKNOWN FREQ.
     Route: 065
  16. VALGANCICLOVIR HYDROCHLORIDE [Suspect]
     Active Substance: VALGANCICLOVIR HYDROCHLORIDE
     Indication: Cytomegalovirus viraemia
  17. ANIDULAFUNGIN [Suspect]
     Active Substance: ANIDULAFUNGIN
     Indication: Enterococcal infection
     Dosage: UNK UNK, UNKNOWN FREQ.
     Route: 065
  18. ANIDULAFUNGIN [Suspect]
     Active Substance: ANIDULAFUNGIN
     Indication: Antifungal prophylaxis
  19. MEROPENEM [Suspect]
     Active Substance: MEROPENEM
     Indication: Enterococcal infection
     Dosage: UNK UNK, UNKNOWN FREQ.
     Route: 065
  20. HYDROCORTISONE [Suspect]
     Active Substance: HYDROCORTISONE
     Indication: Immunosuppressant drug therapy
     Dosage: UNK UNK, UNKNOWN FREQ.
     Route: 065
  21. VORICONAZOLE [Suspect]
     Active Substance: VORICONAZOLE
     Indication: Antifungal prophylaxis
     Dosage: UNK UNK, UNKNOWN FREQ.
     Route: 065
  22. VORICONAZOLE [Suspect]
     Active Substance: VORICONAZOLE
     Indication: Anti-infective therapy
  23. GANCICLOVIR SODIUM [Suspect]
     Active Substance: GANCICLOVIR SODIUM
     Indication: Enterococcal infection
     Dosage: UNK UNK, UNKNOWN FREQ.
     Route: 065
  24. GANCICLOVIR SODIUM [Suspect]
     Active Substance: GANCICLOVIR SODIUM
     Indication: Antifungal prophylaxis
  25. DAPTOMYCIN [Suspect]
     Active Substance: DAPTOMYCIN
     Indication: Enterococcal infection
     Dosage: UNK UNK, UNKNOWN FREQ.
     Route: 065

REACTIONS (10)
  - Fusarium infection [Fatal]
  - Cerebral fungal infection [Fatal]
  - Brain abscess [Fatal]
  - Intracranial infection [Fatal]
  - Blood pressure fluctuation [Fatal]
  - Brain oedema [Fatal]
  - Imprisonment [Fatal]
  - Drug ineffective [Fatal]
  - Cytomegalovirus viraemia [Unknown]
  - Enterococcal infection [Unknown]
